FAERS Safety Report 21553301 (Version 1)
Quarter: 2022Q4

REPORT INFORMATION
  Report Type: Spontaneous
  Country: US (occurrence: US)
  Receive Date: 20221104
  Receipt Date: 20221104
  Transmission Date: 20230113
  Serious: No
  Sender: FDA-Public Use
  Company Number: US-Accord-270105

PATIENT
  Weight: 60.78 kg

DRUGS (2)
  1. FLUOROURACIL [Suspect]
     Active Substance: FLUOROURACIL
     Indication: Actinic keratosis
     Dosage: THIN LAYER ON EACH CHEEK EVERY NIGHT FOR 4 WEEKS
     Dates: start: 20220301, end: 20220321
  2. NEURONTIN [Concomitant]
     Active Substance: GABAPENTIN

REACTIONS (5)
  - Swelling face [Unknown]
  - Burning sensation [Unknown]
  - Skin discomfort [Unknown]
  - Nerve injury [Unknown]
  - Skin exfoliation [Not Recovered/Not Resolved]
